FAERS Safety Report 23293579 (Version 1)
Quarter: 2023Q4

REPORT INFORMATION
  Report Type: Spontaneous
  Country: US (occurrence: US)
  Receive Date: 20231213
  Receipt Date: 20231213
  Transmission Date: 20240110
  Serious: No
  Sender: FDA-Public Use
  Company Number: US-NOVOPROD-1120823

PATIENT
  Age: 69 Year
  Sex: Female

DRUGS (1)
  1. LEVEMIR [Suspect]
     Active Substance: INSULIN DETEMIR
     Indication: Type 2 diabetes mellitus
     Dosage: 44 IU, QD
     Route: 058
     Dates: start: 2015

REACTIONS (7)
  - Respiratory disorder [Unknown]
  - Malaise [Unknown]
  - Injection site pain [Unknown]
  - Blood glucose increased [Recovered/Resolved]
  - Blood glucose decreased [Recovered/Resolved]
  - Device malfunction [Unknown]
  - Anxiety [Unknown]

NARRATIVE: CASE EVENT DATE: 20230501
